FAERS Safety Report 23850879 (Version 1)
Quarter: 2024Q2

REPORT INFORMATION
  Report Type: Spontaneous
  Country: US (occurrence: US)
  Receive Date: 20240514
  Receipt Date: 20240514
  Transmission Date: 20240716
  Serious: Yes (Other)
  Sender: FDA-Public Use
  Company Number: US-STRIDES ARCOLAB LIMITED-2024SP005501

PATIENT
  Age: 7 Decade
  Sex: Female

DRUGS (7)
  1. PREDNISOLONE [Suspect]
     Active Substance: PREDNISOLONE
     Indication: Sjogren^s syndrome
     Dosage: 15 MILLIGRAM, QOD (GLUTEN FREE TABLET)
     Route: 065
  2. PREDNISOLONE [Suspect]
     Active Substance: PREDNISOLONE
     Indication: Tubulointerstitial nephritis
     Dosage: UNK (TABLET CONTAINING WHEAT STARCH)
     Route: 065
     Dates: start: 202011
  3. PREDNISOLONE [Suspect]
     Active Substance: PREDNISOLONE
     Indication: Coeliac disease
  4. ABALOPARATIDE [Concomitant]
     Active Substance: ABALOPARATIDE
     Indication: Osteoporosis
     Dosage: 80 MICROGRAM, QD
     Route: 065
     Dates: start: 202010
  5. VITAMIN D3 [Concomitant]
     Active Substance: CHOLECALCIFEROL
     Indication: Supplementation therapy
     Dosage: 2000 INTERNATIONAL UNIT, QD
     Route: 065
     Dates: start: 202006
  6. CALCIUM CARBONATE [Concomitant]
     Active Substance: CALCIUM CARBONATE
     Indication: Supplementation therapy
     Dosage: UNK
     Route: 065
     Dates: start: 202006, end: 202006
  7. RISEDRONATE SODIUM [Concomitant]
     Active Substance: RISEDRONATE SODIUM
     Indication: Osteoporosis
     Dosage: UNK
     Route: 065
     Dates: start: 202006, end: 202006

REACTIONS (5)
  - Hyperparathyroidism secondary [Recovered/Resolved]
  - Malabsorption [Recovered/Resolved]
  - Condition aggravated [Recovered/Resolved]
  - Product dispensing error [Unknown]
  - COVID-19 [Unknown]

NARRATIVE: CASE EVENT DATE: 20200601
